FAERS Safety Report 17877727 (Version 3)
Quarter: 2020Q2

REPORT INFORMATION
  Report Type: Report from Study
  Country: CL (occurrence: CL)
  Receive Date: 20200609
  Receipt Date: 20200624
  Transmission Date: 20200714
  Serious: Yes (Other)
  Sender: FDA-Public Use
  Company Number: NVSC2020CL146034

PATIENT
  Sex: Female

DRUGS (1)
  1. COSENTYX [Suspect]
     Active Substance: SECUKINUMAB
     Indication: PSORIATIC ARTHROPATHY
     Dosage: 150 MG, UNKNOWN
     Route: 058
     Dates: start: 20180801

REACTIONS (5)
  - Product storage error [Recovering/Resolving]
  - Uveitis [Not Recovered/Not Resolved]
  - Fear [Unknown]
  - Glaucoma [Not Recovered/Not Resolved]
  - Intercepted product dispensing error [Unknown]
